FAERS Safety Report 9225334 (Version 1)
Quarter: 2013Q2

REPORT INFORMATION
  Report Type: Spontaneous
  Country: IN (occurrence: None)
  Receive Date: 20130409
  Receipt Date: 20130409
  Transmission Date: 20140414
  Serious: Yes (Other)
  Sender: FDA-Public Use
  Company Number: AUR-APL-2013-02742

PATIENT
  Age: 52 Year
  Sex: Male

DRUGS (3)
  1. VENLAFAXINE [Suspect]
     Indication: MAJOR DEPRESSION
     Dosage: 225 MG, 1 D
  2. CITALOPRAM (CITALOPRAM) [Suspect]
     Indication: MAJOR DEPRESSION
     Dosage: 20 MG, 1 D
  3. BUPROPION (BUPROPION) [Suspect]
     Indication: MAJOR DEPRESSION

REACTIONS (7)
  - Anxiety [None]
  - Agitation [None]
  - Restlessness [None]
  - Suicidal ideation [None]
  - Blood pressure increased [None]
  - Drug interaction [None]
  - Therapeutic response decreased [None]
